FAERS Safety Report 5167606-6 (Version None)
Quarter: 2006Q4

REPORT INFORMATION
  Report Type: 
  Country: None (occurrence: None)
  Receive Date: 20060919
  Receipt Date: 20060720
  Transmission Date: 20070319
  Serious: No
  Sender: FDA-Public Use
  Company Number: BDI-008430

PATIENT
  Age: 67 Year
  Sex: Female

DRUGS (2)
  1. MULTIHANCE [Suspect]
     Indication: ANGIOGRAM
     Dosage: 20 ML ONCE IV
     Route: 042
     Dates: start: 20060709, end: 20060709
  2. MULTIHANCE [Suspect]
     Indication: HYPERTENSION
     Dosage: 20 ML ONCE IV
     Route: 042
     Dates: start: 20060709, end: 20060709

REACTIONS (2)
  - EXTRAVASATION [None]
  - PAIN [None]
